FAERS Safety Report 10748150 (Version 1)
Quarter: 2015Q1

REPORT INFORMATION
  Report Type: Spontaneous
  Country: IN (occurrence: None)
  Receive Date: 20150127
  Receipt Date: 20150127
  Transmission Date: 20150721
  Serious: Yes (Hospitalization, Other)
  Sender: FDA-Public Use
  Company Number: 1540513

PATIENT
  Age: 30 Year
  Sex: Male

DRUGS (1)
  1. ALPRAZOLAM. [Suspect]
     Active Substance: ALPRAZOLAM
     Indication: DRUG ABUSE

REACTIONS (17)
  - Drug dependence [None]
  - Negativism [None]
  - Catatonia [None]
  - Psychotic disorder [None]
  - Staring [None]
  - Insomnia [None]
  - Diet refusal [None]
  - Fear [None]
  - Posturing [None]
  - Drug interaction [None]
  - Hallucination, auditory [None]
  - Suspiciousness [None]
  - Alcohol withdrawal syndrome [None]
  - Speech disorder [None]
  - Fluid intake reduced [None]
  - Aggression [None]
  - Stereotypy [None]
